FAERS Safety Report 22060364 (Version 1)
Quarter: 2023Q1

REPORT INFORMATION
  Report Type: Spontaneous
  Country: US (occurrence: US)
  Receive Date: 20230303
  Receipt Date: 20230303
  Transmission Date: 20230418
  Serious: No
  Sender: FDA-Public Use
  Company Number: US-BIOGEN-2022BI01113411

PATIENT
  Sex: Male

DRUGS (3)
  1. TECFIDERA [Suspect]
     Active Substance: DIMETHYL FUMARATE
     Indication: Multiple sclerosis
     Route: 050
     Dates: start: 20140121
  2. TECFIDERA [Suspect]
     Active Substance: DIMETHYL FUMARATE
     Route: 050
     Dates: start: 20140121
  3. TECFIDERA [Suspect]
     Active Substance: DIMETHYL FUMARATE
     Dosage: TAKE 1 CAPSULE (240 MG) BY MOUTH TWICE A DAY.
     Route: 050

REACTIONS (4)
  - Prescribed underdose [Unknown]
  - Sluggishness [Recovered/Resolved]
  - Fatigue [Recovered/Resolved]
  - Flushing [Not Recovered/Not Resolved]
